FAERS Safety Report 9931597 (Version 1)
Quarter: 2014Q1

REPORT INFORMATION
  Report Type: Spontaneous
  Country: US (occurrence: None)
  Receive Date: 20140227
  Receipt Date: 20140227
  Transmission Date: 20141002
  Serious: No
  Sender: FDA-Public Use
  Company Number: None

PATIENT
  Sex: 0

DRUGS (1)
  1. PEPTO BISMO [Suspect]
     Dates: start: 201312, end: 20140116

REACTIONS (7)
  - Self-medication [None]
  - Angina pectoris [None]
  - Abdominal pain [None]
  - Asthenia [None]
  - Tremor [None]
  - Hypertension [None]
  - Product quality issue [None]
